FAERS Safety Report 5619540-2 (Version None)
Quarter: 2008Q1

REPORT INFORMATION
  Report Type: 
  Country: None (occurrence: None)
  Receive Date: 20080205
  Receipt Date: 20080205
  Transmission Date: 20080703
  Serious: Yes (Hospitalization)
  Sender: FDA-Public Use
  Company Number: None

PATIENT
  Age: 55 Year
  Sex: Male
  Weight: 100.2449 kg

DRUGS (12)
  1. DOXORUBICIN HCL [Suspect]
     Indication: COLON CANCER
     Dosage: 75MG/M2, Q21D1-3, IV
     Route: 042
     Dates: start: 20080124, end: 20080126
  2. DOXORUBICIN HCL [Suspect]
     Indication: LEIOMYOSARCOMA
     Dosage: 75MG/M2, Q21D1-3, IV
     Route: 042
     Dates: start: 20080124, end: 20080126
  3. IFOSFAMIDE [Suspect]
     Dosage: 2.5G/M2, Q21D1-3, IV
     Route: 042
     Dates: start: 20080124, end: 20080126
  4. MESNA [Concomitant]
  5. FILGRASTIM [Concomitant]
  6. COMPAZINE [Concomitant]
  7. DEXAMETHASONE TAB [Concomitant]
  8. LORAZEPAM [Concomitant]
  9. ZOFRAN [Concomitant]
  10. AMBIEN [Concomitant]
  11. METOPROLOL SUCCINATE [Concomitant]
  12. VICODIN [Concomitant]

REACTIONS (5)
  - ABDOMINAL PAIN [None]
  - CONDITION AGGRAVATED [None]
  - DIARRHOEA [None]
  - FEBRILE NEUTROPENIA [None]
  - OROPHARYNGEAL CANDIDIASIS [None]
